FAERS Safety Report 4578679-3 (Version None)
Quarter: 2005Q1

REPORT INFORMATION
  Report Type: 
  Country: None (occurrence: None)
  Receive Date: 20050211
  Receipt Date: 20041210
  Transmission Date: 20050727
  Serious: Yes (Hospitalization, Disabling)
  Sender: FDA-Public Use
  Company Number: US-MERCK-0412USA01353

PATIENT
  Age: 72 Year
  Sex: Male
  Weight: 90 kg

DRUGS (7)
  1. VYTORIN [Suspect]
     Indication: HYPERLIPIDAEMIA
     Route: 048
     Dates: start: 20041104, end: 20041203
  2. VYTORIN [Suspect]
     Indication: CORONARY ARTERY DISEASE
     Route: 048
     Dates: start: 20041104, end: 20041203
  3. PLAVIX [Concomitant]
     Indication: CORONARY ANGIOPLASTY
     Route: 048
     Dates: start: 20041104, end: 20041203
  4. PLAVIX [Concomitant]
     Route: 048
     Dates: start: 20041213
  5. ASPIRIN [Concomitant]
     Indication: CORONARY ARTERY DISEASE
     Route: 048
  6. TOPROL-XL [Concomitant]
     Indication: ATRIAL FLUTTER
     Route: 048
     Dates: start: 20030101
  7. INFLUENZA VIRUS VACCINE (UNSPECIFIED) [Concomitant]
     Route: 065
     Dates: start: 20041124, end: 20041124

REACTIONS (3)
  - ARTHRALGIA [None]
  - EPIDIDYMITIS [None]
  - SERUM SICKNESS [None]
